FAERS Safety Report 17989508 (Version 11)
Quarter: 2021Q4

REPORT INFORMATION
  Report Type: Spontaneous
  Country: ES (occurrence: ES)
  Receive Date: 20200707
  Receipt Date: 20211209
  Transmission Date: 20220303
  Serious: Yes (Life-Threatening, Hospitalization, Other)
  Sender: FDA-Public Use
  Company Number: ES-TILLOMEDPR-2020-EPL-000758

PATIENT
  Age: 66 Year
  Sex: Male

DRUGS (9)
  1. HALOPERIDOL [Suspect]
     Active Substance: HALOPERIDOL
     Indication: Delirium
     Dosage: 1 MG, 2X PER DAY
     Route: 048
  2. HALOPERIDOL [Suspect]
     Active Substance: HALOPERIDOL
     Indication: Bipolar disorder
     Dosage: 1 MG, 2X PER DAY
     Route: 048
  3. DULOXETINE [Interacting]
     Active Substance: DULOXETINE
     Indication: Bipolar disorder
     Route: 048
  4. DULOXETINE [Interacting]
     Active Substance: DULOXETINE
     Indication: Cervical spinal stenosis
  5. LITHIUM [Interacting]
     Active Substance: LITHIUM
     Indication: Bipolar disorder
     Route: 048
  6. LOPINAVIR\RITONAVIR [Interacting]
     Active Substance: LOPINAVIR\RITONAVIR
     Indication: COVID-19 pneumonia
     Dosage: 1 DF, 2X PER DAY (12 HOURLY)?(LOPINAVIR 400 MG, RITONAVIR 100 MG)
     Route: 048
  7. LOPINAVIR\RITONAVIR [Interacting]
     Active Substance: LOPINAVIR\RITONAVIR
     Indication: COVID-19
     Dosage: 400 MG/100 MG TWICE DAILY
     Route: 065
  8. HYDROXYCHLOROQUINE [Concomitant]
     Active Substance: HYDROXYCHLOROQUINE
     Indication: COVID-19 pneumonia
     Dosage: 200 MG, 2X PER DAY
     Route: 048
  9. HYDROXYCHLOROQUINE [Concomitant]
     Active Substance: HYDROXYCHLOROQUINE
     Indication: COVID-19
     Route: 065

REACTIONS (16)
  - Serotonin syndrome [Recovered/Resolved]
  - Delirium [Recovering/Resolving]
  - Hypertension [Recovered/Resolved]
  - Depressed level of consciousness [Recovering/Resolving]
  - Depressed level of consciousness [Recovering/Resolving]
  - Tachycardia [Recovered/Resolved]
  - Urinary retention [Recovered/Resolved]
  - Hyperhidrosis [Recovered/Resolved]
  - Hyperreflexia [Recovered/Resolved]
  - Myoclonus [Recovered/Resolved]
  - Encephalopathy [Recovered/Resolved]
  - Clonus [Recovered/Resolved]
  - Blood creatinine increased [Recovered/Resolved]
  - Speech sound disorder [Recovering/Resolving]
  - Blood creatine phosphokinase increased [Recovering/Resolving]
  - Drug interaction [Recovered/Resolved]
